FAERS Safety Report 6501907-1 (Version None)
Quarter: 2009Q4

REPORT INFORMATION
  Report Type: 
  Country: None (occurrence: None)
  Receive Date: 20091216
  Receipt Date: 20091207
  Transmission Date: 20100525
  Serious: Yes (Other)
  Sender: FDA-Public Use
  Company Number: PHEH2008US06401

PATIENT
  Sex: Female

DRUGS (9)
  1. DIOVAN HCT [Suspect]
     Dosage: 160 MG VAL, 12.5 MG HCT, UNK
     Route: 065
     Dates: start: 20080501
  2. AMLODIPINE [Suspect]
     Dosage: UNK
     Route: 065
     Dates: start: 20080501
  3. EFFEXOR XR [Concomitant]
     Route: 065
  4. PLAVIX [Concomitant]
     Route: 065
  5. XANAX [Concomitant]
     Route: 065
  6. TRAVATAN [Concomitant]
     Dosage: UNK
     Route: 047
  7. ACTONEL [Concomitant]
     Route: 065
  8. WELCHOL [Concomitant]
     Route: 065
  9. LOVAZA [Concomitant]
     Route: 065

REACTIONS (5)
  - BLOOD PRESSURE INCREASED [None]
  - DIZZINESS [None]
  - FEELING HOT [None]
  - GLAUCOMA [None]
  - NAUSEA [None]
